FAERS Safety Report 23056745 (Version 1)
Quarter: 2023Q4

REPORT INFORMATION
  Report Type: Spontaneous
  Country: LK (occurrence: None)
  Receive Date: 20231012
  Receipt Date: 20231012
  Transmission Date: 20240110
  Serious: Yes (Other)
  Sender: FDA-Public Use
  Company Number: LK-MAIA Pharmaceuticals, Inc.-MAI202310-000054

PATIENT
  Age: 72 Year
  Sex: Male

DRUGS (1)
  1. BACLOFEN [Suspect]
     Active Substance: BACLOFEN
     Indication: Pelvic pain
     Dosage: 10 MG
     Route: 065

REACTIONS (6)
  - Myoclonus [Recovered/Resolved]
  - Asterixis [Recovered/Resolved]
  - Somnolence [Recovered/Resolved]
  - Disorientation [Recovered/Resolved]
  - Hypotonia [Recovered/Resolved]
  - Product use in unapproved indication [Unknown]
